FAERS Safety Report 16102450 (Version 1)
Quarter: 2019Q1

REPORT INFORMATION
  Report Type: Spontaneous
  Country: US (occurrence: US)
  Receive Date: 20190321
  Receipt Date: 20190321
  Transmission Date: 20190418
  Serious: Yes (Other)
  Sender: FDA-Public Use
  Company Number: US-CUTANEA LIFE SCIENCES, INC.-2019CUT000006

PATIENT

DRUGS (1)
  1. XEPI [Suspect]
     Active Substance: OZENOXACIN
     Indication: PRODUCT USED FOR UNKNOWN INDICATION
     Route: 061

REACTIONS (3)
  - Dysphagia [Recovering/Resolving]
  - Swelling face [Recovering/Resolving]
  - Self-medication [None]
